FAERS Safety Report 9393336 (Version 1)
Quarter: 2013Q3

REPORT INFORMATION
  Report Type: Spontaneous
  Country: FR (occurrence: FR)
  Receive Date: 20130710
  Receipt Date: 20130710
  Transmission Date: 20140515
  Serious: Yes (Hospitalization, Disabling, Other)
  Sender: FDA-Public Use
  Company Number: FR-PFIZER INC-2013197474

PATIENT
  Age: 85 Year
  Sex: Female

DRUGS (16)
  1. TAHOR [Suspect]
     Dosage: 10 MG, 1X/DAY
     Route: 048
  2. CIPROFLOXACIN [Suspect]
     Indication: URINARY TRACT INFECTION
     Dosage: 500 MG, 2X/DAY
     Route: 048
     Dates: start: 20120727, end: 20120808
  3. LEXOMIL [Concomitant]
  4. INEXIUM [Concomitant]
     Dosage: 20 MG, UNK
  5. FORLAX [Concomitant]
     Dosage: 10 G, UNK
  6. PRIMPERAN [Concomitant]
  7. DAFALGAN [Concomitant]
     Dosage: 500 MG, UNK
  8. DIFFU K [Concomitant]
  9. TEMERIT [Concomitant]
     Dosage: 5 MG, UNK
  10. LASILIX [Concomitant]
  11. PREVISCAN [Concomitant]
     Dosage: 20 MG, UNK
  12. GAVISCON [Concomitant]
  13. ALLOPURINOL [Concomitant]
  14. FURADANTINE [Concomitant]
     Dosage: 50 MG, UNK
  15. LOVENOX [Concomitant]
  16. UVEDOSE [Concomitant]

REACTIONS (1)
  - Foot fracture [Not Recovered/Not Resolved]
